FAERS Safety Report 6872191-4 (Version None)
Quarter: 2010Q3

REPORT INFORMATION
  Report Type: 
  Country: None (occurrence: None)
  Receive Date: 20100723
  Receipt Date: 20100712
  Transmission Date: 20110219
  Serious: No
  Sender: FDA-Public Use
  Company Number: B0613446A

PATIENT
  Sex: Female
  Weight: 53 kg

DRUGS (6)
  1. RELENZA [Suspect]
     Indication: INFLUENZA
     Dosage: 20MG PER DAY
     Route: 055
     Dates: start: 20091120, end: 20091124
  2. SINGULAIR [Concomitant]
     Indication: COUGH
     Dosage: 10MG PER DAY
     Route: 048
     Dates: start: 20091120, end: 20091124
  3. CALONAL [Concomitant]
     Indication: ANTIPYRESIS
     Dosage: 200MG PER DAY
     Route: 048
     Dates: start: 20091120, end: 20091124
  4. CLEANAL [Concomitant]
     Indication: PRODUCTIVE COUGH
     Route: 048
     Dates: start: 20091120, end: 20091124
  5. MEDICON [Concomitant]
     Indication: COUGH
     Dosage: 45MG PER DAY
     Route: 048
     Dates: start: 20091120, end: 20091124
  6. DASEN [Concomitant]
     Indication: OROPHARYNGEAL PAIN
     Dosage: 30MG PER DAY
     Route: 048
     Dates: start: 20091120, end: 20091124

REACTIONS (1)
  - DRUG EXPOSURE DURING PREGNANCY [None]
